FAERS Safety Report 12004301 (Version 1)
Quarter: 2016Q1

REPORT INFORMATION
  Report Type: Spontaneous
  Country: US (occurrence: US)
  Receive Date: 20160204
  Receipt Date: 20160204
  Transmission Date: 20160526
  Serious: Yes (Hospitalization)
  Sender: FDA-Public Use
  Company Number: PHHY2016US013425

PATIENT
  Age: 17 Year
  Sex: Male
  Weight: 47.3 kg

DRUGS (5)
  1. PHENOBARBITAL. [Interacting]
     Active Substance: PHENOBARBITAL
     Indication: SEIZURE
     Dosage: 60 MG, QD
     Route: 065
  2. PRIMIDONE. [Interacting]
     Active Substance: PRIMIDONE
     Indication: SEIZURE
     Dosage: 250 MG, TID
     Route: 065
  3. METHYLPHENIDATE. [Suspect]
     Active Substance: METHYLPHENIDATE
     Indication: SEIZURE
     Dosage: 5 MG, BID
     Route: 065
  4. DIPHENYLHYDANTOIN [Interacting]
     Active Substance: PHENYTOIN
     Indication: SEIZURE
     Dosage: 100 MG, UNK
     Route: 065
  5. DIPHENYLHYDANTOIN [Interacting]
     Active Substance: PHENYTOIN
     Dosage: 200 UNK, UNK
     Route: 065

REACTIONS (8)
  - Injury [Unknown]
  - Product use issue [Unknown]
  - Generalised tonic-clonic seizure [Recovered/Resolved]
  - Anticonvulsant drug level increased [Unknown]
  - Nystagmus [Recovered/Resolved]
  - Drug interaction [Unknown]
  - Ataxia [Recovered/Resolved]
  - Toxicity to various agents [Unknown]
